FAERS Safety Report 14014190 (Version 1)
Quarter: 2017Q3

REPORT INFORMATION
  Report Type: Report from Study
  Country: None (occurrence: BE)
  Receive Date: 20170927
  Receipt Date: 20170927
  Transmission Date: 20171128
  Serious: Yes (Death)
  Sender: FDA-Public Use
  Company Number: BE-ABBVIE-17K-013-2113639-00

PATIENT
  Age: 77 Year
  Sex: Male

DRUGS (3)
  1. PROLOPA HBS [Concomitant]
     Active Substance: BENSERAZIDE\LEVODOPA
  2. DUODOPA [Suspect]
     Active Substance: CARBIDOPA\LEVODOPA
     Indication: PARKINSON^S DISEASE
     Dosage: DOSES CONTINUOUSLY MONITORED AND ADAPTED DURING TEST WEEK
     Route: 050
     Dates: start: 20170619, end: 20170622
  3. PROLOPA HBS [Concomitant]
     Active Substance: BENSERAZIDE\LEVODOPA
     Indication: PRODUCT USED FOR UNKNOWN INDICATION

REACTIONS (1)
  - Death [Fatal]

NARRATIVE: CASE EVENT DATE: 201706
